FAERS Safety Report 4344397-X (Version None)
Quarter: 2004Q2

REPORT INFORMATION
  Report Type: 
  Country: None (occurrence: None)
  Receive Date: 20040421
  Receipt Date: 20040421
  Transmission Date: 20050107
  Serious: Yes (Life-Threatening, Hospitalization)
  Sender: FDA-Public Use
  Company Number: None

PATIENT
  Age: 82 Year
  Sex: Female
  Weight: 44.9 kg

DRUGS (14)
  1. GABAPENTIN [Suspect]
     Dosage: 100 MG PO Q8 H
     Route: 048
     Dates: start: 20031113, end: 20031119
  2. GABAPENTIN [Suspect]
     Dosage: 100 MG PO Q8 H
     Route: 048
     Dates: start: 20031123, end: 20031201
  3. AMLODIPINE [Concomitant]
  4. ASPIRIN [Concomitant]
  5. PLETAL [Concomitant]
  6. SURFAK [Concomitant]
  7. PEPCID [Concomitant]
  8. FERROUS SULFATE TAB [Concomitant]
  9. OXYCONTIN [Concomitant]
  10. QUININE [Concomitant]
  11. SENNA [Concomitant]
  12. VICODIN [Concomitant]
  13. AMBIEN [Concomitant]
  14. REGLAN [Concomitant]

REACTIONS (2)
  - BLOOD SODIUM DECREASED [None]
  - DEHYDRATION [None]
